FAERS Safety Report 9114751 (Version 1)
Quarter: 2013Q1

REPORT INFORMATION
  Report Type: Spontaneous
  Country: CA (occurrence: CA)
  Receive Date: 20130208
  Receipt Date: 20130208
  Transmission Date: 20140127
  Serious: Yes (Other)
  Sender: FDA-Public Use
  Company Number: CA-ROCHE-1188549

PATIENT
  Age: 48 Year
  Sex: Male

DRUGS (2)
  1. NAPROSYN [Suspect]
     Indication: MYALGIA
     Route: 048
     Dates: start: 20130201
  2. NAPROSYN [Suspect]
     Route: 048
     Dates: start: 20130202, end: 20130202

REACTIONS (2)
  - Overdose [Unknown]
  - VIIth nerve paralysis [Not Recovered/Not Resolved]
